FAERS Safety Report 6935391-0 (Version None)
Quarter: 2010Q3

REPORT INFORMATION
  Report Type: 
  Country: None (occurrence: None)
  Receive Date: 20100823
  Receipt Date: 20100811
  Transmission Date: 20110219
  Serious: Yes (Hospitalization, Other)
  Sender: FDA-Public Use
  Company Number: US-BIOGENIDEC-2010BI024249

PATIENT
  Sex: Female

DRUGS (1)
  1. AVONEX [Suspect]
     Indication: MULTIPLE SCLEROSIS
     Route: 030
     Dates: start: 20021115

REACTIONS (18)
  - BACK INJURY [None]
  - BALANCE DISORDER [None]
  - BENIGN LYMPH NODE NEOPLASM [None]
  - BENIGN NEOPLASM [None]
  - BLINDNESS TRANSIENT [None]
  - COGNITIVE DISORDER [None]
  - ENDOCARDITIS [None]
  - FALL [None]
  - FATIGUE [None]
  - FEELING ABNORMAL [None]
  - GENERAL SYMPTOM [None]
  - HEAD INJURY [None]
  - HEADACHE [None]
  - HEPATIC STEATOSIS [None]
  - HYPOTONIA [None]
  - INFECTION [None]
  - LYMPHOMA [None]
  - ROAD TRAFFIC ACCIDENT [None]
